FAERS Safety Report 14315531 (Version 2)
Quarter: 2018Q4

REPORT INFORMATION
  Report Type: Spontaneous
  Country: US (occurrence: US)
  Receive Date: 20171221
  Receipt Date: 20181219
  Transmission Date: 20190204
  Serious: No
  Sender: FDA-Public Use
  Company Number: US-IMPAX LABORATORIES, INC-2017-IPXL-02369

PATIENT
  Age: 72 Year
  Sex: Female
  Weight: 73 kg

DRUGS (7)
  1. EFFEXOR [Concomitant]
     Active Substance: VENLAFAXINE HYDROCHLORIDE
     Indication: MENIERE^S DISEASE
     Dosage: UNK
     Route: 065
  2. BENICAR [Concomitant]
     Active Substance: OLMESARTAN MEDOXOMIL
     Indication: HYPERTENSION
     Dosage: 10 MG, UNK
     Route: 065
  3. ACETAZOLAMIDE. [Concomitant]
     Active Substance: ACETAZOLAMIDE
     Indication: MENIERE^S DISEASE
     Dosage: 500 MG, UNK
     Route: 065
  4. COLESTIPOL HYDROCHLORIDE. [Suspect]
     Active Substance: COLESTIPOL HYDROCHLORIDE
     Indication: PRODUCT USE IN UNAPPROVED INDICATION
  5. VALIUM [Concomitant]
     Active Substance: DIAZEPAM
     Indication: MENIERE^S DISEASE
     Dosage: 2 MG, UNK
     Route: 065
  6. COLESTIPOL HYDROCHLORIDE. [Suspect]
     Active Substance: COLESTIPOL HYDROCHLORIDE
     Indication: DIARRHOEA
     Dosage: 1 G, ONE TABLET, DAILY
     Route: 048
     Dates: start: 201704, end: 20170802
  7. NORTRIPTYLINE [Concomitant]
     Active Substance: NORTRIPTYLINE
     Indication: MENIERE^S DISEASE
     Dosage: 50 MG, UNK
     Route: 065

REACTIONS (4)
  - Eructation [Recovered/Resolved]
  - Product substitution issue [Unknown]
  - Product use complaint [Recovered/Resolved]
  - Product use in unapproved indication [Unknown]

NARRATIVE: CASE EVENT DATE: 201704
